FAERS Safety Report 5974456-7 (Version None)
Quarter: 2008Q4

REPORT INFORMATION
  Report Type: 
  Country: None (occurrence: None)
  Receive Date: 20081201
  Receipt Date: 20081120
  Transmission Date: 20090506
  Serious: Yes (Other)
  Sender: FDA-Public Use
  Company Number: US-PFIZER INC-2008099176

PATIENT
  Age: 45 Year
  Sex: Female

DRUGS (2)
  1. GEODON [Suspect]
     Indication: BIPOLAR I DISORDER
  2. OPIOIDS [Suspect]

REACTIONS (2)
  - DRUG DEPENDENCE [None]
  - TARDIVE DYSKINESIA [None]
